FAERS Safety Report 14138195 (Version 1)
Quarter: 2017Q4

REPORT INFORMATION
  Report Type: Spontaneous
  Country: TW (occurrence: TW)
  Receive Date: 20171027
  Receipt Date: 20171027
  Transmission Date: 20180321
  Serious: Yes (Life-Threatening, Hospitalization)
  Sender: FDA-Public Use
  Company Number: TW-MYLANLABS-2017M1067078

PATIENT
  Age: 86 Year
  Sex: Male

DRUGS (1)
  1. PREDNISOLONE. [Suspect]
     Active Substance: PREDNISOLONE
     Indication: CHRONIC OBSTRUCTIVE PULMONARY DISEASE
     Dosage: 5 MG DAILY
     Route: 048

REACTIONS (6)
  - Intestinal haemorrhage [Recovered/Resolved]
  - Cytomegalovirus viraemia [Unknown]
  - Hypovolaemic shock [Unknown]
  - Cytomegalovirus colitis [Unknown]
  - Cytomegalovirus gastrointestinal infection [Unknown]
  - Gastroduodenitis [Unknown]
